FAERS Safety Report 6223092-6 (Version None)
Quarter: 2009Q2

REPORT INFORMATION
  Report Type: 
  Country: None (occurrence: None)
  Receive Date: 20090611
  Receipt Date: 20090601
  Transmission Date: 20091009
  Serious: Yes (Death, Hospitalization)
  Sender: FDA-Public Use
  Company Number: PH-BAXTER-2009BH009566

PATIENT
  Age: 20 Year
  Sex: Male

DRUGS (1)
  1. DIANEAL [Suspect]
     Indication: RENAL FAILURE
     Route: 033
     Dates: start: 20081024, end: 20090528

REACTIONS (4)
  - BLOODY PERITONEAL EFFLUENT [None]
  - DYSPNOEA [None]
  - MULTI-ORGAN FAILURE [None]
  - OEDEMA [None]
